FAERS Safety Report 9735785 (Version 2)
Quarter: 2015Q3

REPORT INFORMATION
  Report Type: Spontaneous
  Country: US (occurrence: US)
  Receive Date: 20131206
  Receipt Date: 20150804
  Transmission Date: 20151125
  Serious: No
  Sender: FDA-Public Use
  Company Number: US-GILEAD-2009-0023102

PATIENT
  Age: 83 Year
  Sex: Female
  Weight: 74.84 kg

DRUGS (11)
  1. AMLOPIDINE BESYLATE [Concomitant]
  2. CARVEDILOL. [Concomitant]
     Active Substance: CARVEDILOL
  3. CRESTOR [Concomitant]
     Active Substance: ROSUVASTATIN CALCIUM
  4. DIOVAN [Concomitant]
     Active Substance: VALSARTAN
  5. ISOSORBIDE. [Concomitant]
     Active Substance: ISOSORBIDE
  6. CITALOPRAM [Concomitant]
     Active Substance: CITALOPRAM HYDROBROMIDE
  7. LETAIRIS [Suspect]
     Active Substance: AMBRISENTAN
     Indication: PULMONARY ARTERIAL HYPERTENSION
     Route: 048
     Dates: start: 20090616
  8. ASPIRIN. [Concomitant]
     Active Substance: ASPIRIN
  9. GLIPIZIDE XL [Concomitant]
     Active Substance: GLIPIZIDE
  10. XALATAN [Concomitant]
     Active Substance: LATANOPROST
  11. METFORMIN [Concomitant]
     Active Substance: METFORMIN HYDROCHLORIDE

REACTIONS (2)
  - Peripheral swelling [Unknown]
  - Nasal congestion [Unknown]
